FAERS Safety Report 4854302-5 (Version None)
Quarter: 2005Q4

REPORT INFORMATION
  Report Type: 
  Country: None (occurrence: None)
  Receive Date: 20051213
  Receipt Date: 20051213
  Transmission Date: 20060501
  Serious: Yes (Hospitalization)
  Sender: FDA-Public Use
  Company Number: None

PATIENT
  Sex: Male
  Weight: 124 kg

DRUGS (4)
  1. IFOSFAMIDE [Suspect]
     Indication: SARCOMA
     Dosage: 5500 MG  -DAY 1-4-  EACH CYCLE IV DRIP   6 CYCLES
     Route: 041
     Dates: start: 20050307, end: 20050729
  2. EPIRUBICIN [Concomitant]
  3. MESNA NUELASTA [Concomitant]
  4. PROCRIT [Concomitant]

REACTIONS (4)
  - AZOTAEMIA [None]
  - DIALYSIS [None]
  - KIDNEY FIBROSIS [None]
  - RENAL FAILURE CHRONIC [None]
